FAERS Safety Report 7347444-6 (Version None)
Quarter: 2011Q1

REPORT INFORMATION
  Report Type: 
  Country: None (occurrence: None)
  Receive Date: 20110311
  Receipt Date: 20110303
  Transmission Date: 20110831
  Serious: Yes (Other)
  Sender: FDA-Public Use
  Company Number: US-PERRIGO-11US001856

PATIENT
  Age: 54 Year
  Sex: Female

DRUGS (2)
  1. PREDNISONE TAB [Concomitant]
     Indication: COLITIS ULCERATIVE
     Dosage: TAPERING DOSE
     Route: 065
  2. MESALAMINE [Suspect]
     Indication: COLITIS ULCERATIVE
     Dosage: 2.4 G, QD
     Route: 065

REACTIONS (3)
  - PALPITATIONS [None]
  - PERICARDIAL EFFUSION [None]
  - DYSPNOEA [None]
